FAERS Safety Report 7367046 (Version 3)
Quarter: 2014Q1

REPORT INFORMATION
  Report Type: Spontaneous
  Country: US (occurrence: US)
  Receive Date: 20100427
  Receipt Date: 20140123
  Transmission Date: 20141002
  Serious: Yes (Other)
  Sender: FDA-Public Use
  Company Number: US-JNJFOC-20100404813

PATIENT
  Sex: Male
  Weight: 77.11 kg

DRUGS (21)
  1. SANDOZ FENTANYL TRANSDERMAL SYSTEM [Suspect]
     Indication: PAIN
     Route: 062
     Dates: start: 2006, end: 201003
  2. SANDOZ FENTANYL TRANSDERMAL SYSTEM [Suspect]
     Indication: PAIN
     Route: 062
     Dates: start: 2005, end: 2006
  3. SANDOZ FENTANYL TRANSDERMAL SYSTEM [Suspect]
     Indication: PAIN
     Dosage: 100 UG/HR (SEVEN PATCHES) AND ONE 50 UG/HR PATCH
     Route: 062
     Dates: start: 201003, end: 201004
  4. AMBIEN [Concomitant]
     Route: 048
     Dates: start: 2005
  5. ATIVAN [Concomitant]
     Indication: ANXIETY
     Route: 048
     Dates: start: 2005
  6. COMPAZINE [Concomitant]
     Indication: NAUSEA
     Route: 048
     Dates: start: 2005
  7. HYDROMORPHONE [Concomitant]
     Indication: PAIN
     Route: 048
     Dates: start: 2005
  8. GAS  X [Concomitant]
     Indication: ABDOMINAL DISTENSION
     Dosage: THIN STRIPS
     Route: 048
     Dates: start: 2005
  9. KLONOPIN [Concomitant]
     Indication: ANXIETY
     Dosage: THIN STRIPS
     Route: 048
     Dates: start: 2005
  10. LOVENOX [Concomitant]
     Indication: ANTICOAGULANT THERAPY
     Dosage: THIN STRIPS
     Route: 058
     Dates: start: 2005
  11. MUCINEX [Concomitant]
     Indication: DYSPEPSIA
     Dosage: THIN STRIPS
     Route: 048
     Dates: start: 2005
  12. REGLAN [Concomitant]
     Route: 048
     Dates: start: 2005
  13. RESTORIL [Concomitant]
     Route: 048
     Dates: start: 2005
  14. SENOKOT [Concomitant]
     Route: 048
     Dates: start: 2005
  15. ZOMAX [Concomitant]
     Route: 048
     Dates: start: 2005
  16. TRIPLE ANTIBIOTIC [Concomitant]
     Route: 048
     Dates: start: 2005
  17. TENOFOVIR [Concomitant]
     Indication: HIV INFECTION
     Route: 048
     Dates: start: 2005
  18. VIREAD [Concomitant]
     Indication: HIV INFECTION
     Route: 048
     Dates: start: 2005
  19. ZESTRIL [Concomitant]
     Route: 048
     Dates: start: 2005
  20. ZOVIRAX [Concomitant]
     Indication: HIV INFECTION
     Route: 048
     Dates: start: 2005
  21. HUMULIN INSULIN N [Concomitant]
     Route: 058
     Dates: start: 2005

REACTIONS (5)
  - Staphylococcal infection [Recovered/Resolved]
  - Product quality issue [Unknown]
  - Therapeutic response decreased [Recovered/Resolved]
  - Drug ineffective [Recovered/Resolved]
  - Drug effect decreased [Recovered/Resolved]
